FAERS Safety Report 5952973-3 (Version None)
Quarter: 2008Q4

REPORT INFORMATION
  Report Type: 
  Country: None (occurrence: None)
  Receive Date: 20081114
  Receipt Date: 20081101
  Transmission Date: 20090506
  Serious: Yes (Other)
  Sender: FDA-Public Use
  Company Number: US-BAYER-200829743GPV

PATIENT
  Age: 82 Year
  Sex: Male

DRUGS (2)
  1. MOXIFLOXACIN HCL [Suspect]
     Indication: EMPYEMA
     Route: 048
  2. ANTIBIOTICS [Concomitant]
     Indication: EMPYEMA
     Route: 042

REACTIONS (3)
  - JAUNDICE [None]
  - PRURITUS [None]
  - VANISHING BILE DUCT SYNDROME [None]
